FAERS Safety Report 10385066 (Version 1)
Quarter: 2014Q1

REPORT INFORMATION
  Report Type: Spontaneous
  Country: US (occurrence: None)
  Receive Date: 20140306
  Receipt Date: 20140306
  Transmission Date: 20141002
  Serious: Yes (Other)
  Sender: FDA-Public Use
  Company Number: 163-21880-13033821

PATIENT
  Age: 74 Year
  Sex: Male

DRUGS (6)
  1. REVLIMID (LENALIDOMIDE) (10 MILLIGRAM, CAPSULES) [Suspect]
     Indication: PLASMA CELL MYELOMA
     Route: 048
     Dates: start: 20130214
  2. COUMADIN (WARFARIN SODIUM) [Concomitant]
  3. TEMAZEPAM [Concomitant]
  4. METOPROLOL [Concomitant]
  5. SIMVASTATIN [Concomitant]
  6. CYCLOBENZAPRINE [Concomitant]

REACTIONS (2)
  - Sudden hearing loss [None]
  - Rash [None]
